FAERS Safety Report 25170467 (Version 1)
Quarter: 2025Q2

REPORT INFORMATION
  Report Type: Spontaneous
  Country: US (occurrence: US)
  Receive Date: 20250408
  Receipt Date: 20250408
  Transmission Date: 20250717
  Serious: No
  Sender: ROCHE
  Company Number: US-ROCHE-10000246981

PATIENT
  Age: 74 Year
  Sex: Male

DRUGS (6)
  1. ESBRIET [Suspect]
     Active Substance: PIRFENIDONE
     Indication: Product used for unknown indication
     Route: 065
  2. TYVASO DPI [Suspect]
     Active Substance: TREPROSTINIL
     Indication: Pulmonary arterial hypertension
     Route: 050
     Dates: start: 202412
  3. TYVASO DPI [Suspect]
     Active Substance: TREPROSTINIL
     Route: 050
  4. TYVASO DPI [Suspect]
     Active Substance: TREPROSTINIL
     Route: 050
  5. TYVASO DPI [Suspect]
     Active Substance: TREPROSTINIL
     Route: 050
  6. TYVASO DPI [Suspect]
     Active Substance: TREPROSTINIL
     Route: 050

REACTIONS (10)
  - Dyspnoea [Unknown]
  - Cough [Unknown]
  - Dyspepsia [Unknown]
  - Headache [Unknown]
  - Dizziness [Unknown]
  - Decreased appetite [Unknown]
  - Weight decreased [Unknown]
  - General physical health deterioration [Unknown]
  - Throat irritation [Unknown]
  - Fatigue [Unknown]
